FAERS Safety Report 6813134-9 (Version None)
Quarter: 2010Q3

REPORT INFORMATION
  Report Type: 
  Country: None (occurrence: None)
  Receive Date: 20100701
  Receipt Date: 20100624
  Transmission Date: 20110219
  Serious: Yes (Other)
  Sender: FDA-Public Use
  Company Number: ZA-PFIZER INC-2010079269

PATIENT
  Age: 72 Year
  Sex: Female

DRUGS (3)
  1. CELEBREX [Suspect]
     Dosage: 400 MG, UNK
     Route: 048
  2. RIVAROXABAN [Suspect]
     Dosage: UNK
  3. ARIXTRA [Suspect]
     Dosage: UNK

REACTIONS (1)
  - WOUND HAEMORRHAGE [None]
